FAERS Safety Report 7053732-3 (Version None)
Quarter: 2010Q4

REPORT INFORMATION
  Report Type: 
  Country: None (occurrence: None)
  Receive Date: 20101020
  Receipt Date: 20101014
  Transmission Date: 20110411
  Serious: Yes (Other)
  Sender: FDA-Public Use
  Company Number: A0883772A

PATIENT
  Age: 49 Year
  Sex: Female

DRUGS (4)
  1. ADVAIR DISKUS 100/50 [Suspect]
     Indication: CHRONIC OBSTRUCTIVE PULMONARY DISEASE
     Dosage: 1PUFF TWICE PER DAY
     Route: 055
     Dates: start: 20100918, end: 20100923
  2. METFORMIN HCL [Concomitant]
  3. SOMA [Concomitant]
  4. VICODIN [Concomitant]

REACTIONS (8)
  - MALAISE [None]
  - MOUTH INJURY [None]
  - OCULAR ICTERUS [None]
  - OEDEMA MOUTH [None]
  - OROPHARYNGEAL BLISTERING [None]
  - SWOLLEN TONGUE [None]
  - TONGUE BLISTERING [None]
  - TONGUE DISCOLOURATION [None]
